FAERS Safety Report 10347135 (Version 1)
Quarter: 2014Q3

REPORT INFORMATION
  Report Type: Spontaneous
  Country: FR (occurrence: FR)
  Receive Date: 20140729
  Receipt Date: 20140729
  Transmission Date: 20150326
  Serious: Yes (Life-Threatening, Hospitalization)
  Sender: FDA-Public Use
  Company Number: FR-ROCHE-1441799

PATIENT
  Age: 57 Year
  Sex: Female

DRUGS (14)
  1. TAXOL [Suspect]
     Active Substance: PACLITAXEL
     Indication: INVASIVE DUCTAL BREAST CARCINOMA
     Route: 042
     Dates: start: 20140507, end: 20140507
  2. INIPOMP [Concomitant]
     Active Substance: PANTOPRAZOLE SODIUM
  3. SKENAN [Concomitant]
     Active Substance: MORPHINE SULFATE
  4. SKENAN [Concomitant]
     Active Substance: MORPHINE SULFATE
  5. ENDOXAN [Suspect]
     Active Substance: CYCLOPHOSPHAMIDE
     Indication: INVASIVE DUCTAL BREAST CARCINOMA
     Route: 042
     Dates: start: 20140527, end: 20140527
  6. CELECTOL [Concomitant]
     Active Substance: CELIPROLOL HYDROCHLORIDE
  7. IXPRIM [Concomitant]
     Active Substance: ACETAMINOPHEN\TRAMADOL HYDROCHLORIDE
  8. FLUOROURACILE [Suspect]
     Active Substance: FLUOROURACIL
     Indication: INVASIVE DUCTAL BREAST CARCINOMA
     Route: 042
     Dates: start: 20140527, end: 20140527
  9. ECONAZOLE [Concomitant]
     Active Substance: ECONAZOLE
     Indication: FUNGAL INFECTION
     Route: 065
     Dates: start: 201403
  10. DAFALGAN [Concomitant]
     Active Substance: ACETAMINOPHEN
  11. AVASTIN [Suspect]
     Active Substance: BEVACIZUMAB
     Indication: INVASIVE DUCTAL BREAST CARCINOMA
     Route: 042
     Dates: start: 20140507, end: 20140507
  12. EPIRUBICIN [Suspect]
     Active Substance: EPIRUBICIN
     Indication: INVASIVE DUCTAL BREAST CARCINOMA
     Route: 042
     Dates: start: 20140527, end: 20140527
  13. HYDROCHLOROTHIAZIDE\VALSARTAN [Concomitant]
     Active Substance: HYDROCHLOROTHIAZIDE\VALSARTAN
  14. PIASCLEDINE (FRANCE) [Concomitant]

REACTIONS (3)
  - Pancytopenia [Recovering/Resolving]
  - Ejection fraction decreased [Recovering/Resolving]
  - Cardiogenic shock [Recovering/Resolving]

NARRATIVE: CASE EVENT DATE: 20140601
